FAERS Safety Report 4611202-3 (Version None)
Quarter: 2005Q1

REPORT INFORMATION
  Report Type: 
  Country: None (occurrence: None)
  Receive Date: 20050317
  Receipt Date: 20030102
  Transmission Date: 20050727
  Serious: Yes (Disabling)
  Sender: FDA-Public Use
  Company Number: US-MERCK-0301USA00111

PATIENT
  Age: 45 Year
  Sex: Female

DRUGS (8)
  1. VIOXX [Suspect]
     Indication: OSTEOARTHRITIS
     Route: 048
     Dates: start: 19990101, end: 20040101
  2. ULTRAM [Concomitant]
     Route: 065
  3. LASIX [Concomitant]
     Route: 065
  4. PRILOSEC [Concomitant]
     Route: 065
  5. CLONIDINE [Concomitant]
     Route: 065
  6. ACETAMINOPHEN AND HYDROCODONE BITARTRATE [Concomitant]
     Route: 065
  7. TIZANIDINE [Concomitant]
     Route: 065
  8. PREMARIN [Concomitant]
     Route: 065

REACTIONS (9)
  - BACK PAIN [None]
  - DISABILITY [None]
  - OEDEMA PERIPHERAL [None]
  - RASH GENERALISED [None]
  - RENAL PAIN [None]
  - SWELLING FACE [None]
  - THROMBOSIS [None]
  - TRANSIENT ISCHAEMIC ATTACK [None]
  - URINARY TRACT INFECTION [None]
